FAERS Safety Report 8329556-3 (Version None)
Quarter: 2012Q2

REPORT INFORMATION
  Report Type: 
  Country: None (occurrence: None)
  Receive Date: 20120502
  Receipt Date: 20120424
  Transmission Date: 20120825
  Serious: No
  Sender: FDA-Public Use
  Company Number: US-PFIZER INC-2012084963

PATIENT
  Sex: Female

DRUGS (4)
  1. ZYVOX [Suspect]
     Dosage: 600 MG, Q12
     Route: 048
     Dates: start: 20120227, end: 20120301
  2. PROZAC [Concomitant]
     Indication: DEPRESSION
     Dosage: 40 MG, QD
     Dates: start: 20090101
  3. ABILIFY [Concomitant]
     Indication: DEPRESSION
     Dosage: 5 MG, QD
     Dates: start: 20110401
  4. ZOLOFT [Concomitant]
     Dosage: UNK

REACTIONS (3)
  - NAUSEA [None]
  - DIZZINESS [None]
  - BLOOD PRESSURE DECREASED [None]
